FAERS Safety Report 15370102 (Version 2)
Quarter: 2018Q3

REPORT INFORMATION
  Report Type: Report from Study
  Country: MX (occurrence: MX)
  Receive Date: 20180911
  Receipt Date: 20180926
  Transmission Date: 20181010
  Serious: Yes (Other)
  Sender: FDA-Public Use
  Company Number: PHHY2018MX092235

PATIENT
  Sex: Female

DRUGS (8)
  1. PRADAXA [Concomitant]
     Active Substance: DABIGATRAN ETEXILATE MESYLATE
     Indication: COAGULOPATHY
     Dosage: 1 DF, BID (1 CAPSULE IN THE MORNING OR AT NIGHT) (5 YEARS AGOA PPROXIMATELY)
     Route: 065
  2. PREGABALINA [Concomitant]
     Active Substance: PREGABALIN
     Indication: MYASTHENIA GRAVIS
     Dosage: 2 DF, UNK (5 YEARS AGO APPROXIMATELY)
     Route: 065
  3. ATORVASTATIN [Concomitant]
     Active Substance: ATORVASTATIN
     Indication: MYASTHENIA GRAVIS
     Dosage: 1 DF, UNK (5 YEARS AGO APPROXIMATELY)
     Route: 065
  4. MESTINON [Concomitant]
     Active Substance: PYRIDOSTIGMINE BROMIDE
     Indication: COAGULOPATHY
     Dosage: 4.5 DF, UNK (DAILY (IN THE MORNING, AT 12, AT 4 PM AND AT 8:30 PM) (10 YEARS AGO APPROXIMATELY)
     Route: 065
  5. EXFORGE HCT [Suspect]
     Active Substance: AMLODIPINE BESYLATE\HYDROCHLOROTHIAZIDE\VALSARTAN
     Indication: HYPERTENSION
     Dosage: 1 DF (AMLODIPINE 5 MG, HYDROCHLOROTHIAZIDE 12.5 MG, VALSARTAN 160 MG), QD (IN THE MORNING)
     Route: 048
  6. EXFORGE HCT [Suspect]
     Active Substance: AMLODIPINE BESYLATE\HYDROCHLOROTHIAZIDE\VALSARTAN
     Dosage: 0.5 DF (AMLODIPINE 5 MG ,HYDROCHLOROTHIAZIDE 12.5 MG, VALSARTAN 160 MG), QD
     Route: 048
  7. AMIODARONE [Concomitant]
     Active Substance: AMIODARONE
     Indication: MYASTHENIA GRAVIS
     Dosage: 0.5 DF, QD (IN THE MORNING)
     Route: 065
  8. IMURAN [Concomitant]
     Active Substance: AZATHIOPRINE
     Indication: MYASTHENIA GRAVIS
     Dosage: 1 DF, UNK (5 YEASR AGO APPROXMATELY)
     Route: 065

REACTIONS (2)
  - Deafness [Not Recovered/Not Resolved]
  - Wrong technique in product usage process [Not Recovered/Not Resolved]
